FAERS Safety Report 6772320-7 (Version None)
Quarter: 2010Q2

REPORT INFORMATION
  Report Type: 
  Country: None (occurrence: None)
  Receive Date: 20100616
  Receipt Date: 20091105
  Transmission Date: 20101027
  Serious: No
  Sender: FDA-Public Use
  Company Number: US-ASTRAZENECA-2009SE25032

PATIENT
  Age: 58 Year
  Sex: Female

DRUGS (3)
  1. PULMICORT FLEXHALER [Suspect]
     Indication: MULTIPLE ALLERGIES
     Dosage: 90 UG ONE PUFF IN THE MORNING AND ONE AT NIGHT
     Route: 055
     Dates: start: 20091030
  2. ALLEGRA [Concomitant]
  3. GENERIC NYQUIL [Concomitant]

REACTIONS (3)
  - PRODUCTIVE COUGH [None]
  - RHINORRHOEA [None]
  - SNEEZING [None]
